FAERS Safety Report 4990612-9 (Version None)
Quarter: 2006Q2

REPORT INFORMATION
  Report Type: 
  Country: None (occurrence: None)
  Receive Date: 20060501
  Receipt Date: 20060501
  Transmission Date: 20061013
  Serious: Yes (Hospitalization)
  Sender: FDA-Public Use
  Company Number: None

PATIENT
  Sex: Male
  Weight: 72.73 kg

DRUGS (2)
  1. BEVACIZUMAB (RHUMAB VEGF) [Suspect]
     Indication: COLORECTAL CANCER
     Dosage: 364 MG
     Dates: start: 20060412, end: 20060412
  2. CAMPTOSAR [Suspect]
     Dosage: 282 MG
     Dates: start: 20060412, end: 20060412

REACTIONS (5)
  - COLITIS [None]
  - DEHYDRATION [None]
  - DIARRHOEA [None]
  - NEUTROPHIL COUNT DECREASED [None]
  - WHITE BLOOD CELL COUNT DECREASED [None]
